FAERS Safety Report 15974030 (Version 12)
Quarter: 2023Q2

REPORT INFORMATION
  Report Type: Report from Study
  Country: FR (occurrence: FR)
  Receive Date: 20190217
  Receipt Date: 20230403
  Transmission Date: 20230722
  Serious: Yes (Death)
  Sender: FDA-Public Use
  Company Number: FR-ABBVIE-19K-056-2668897-00

PATIENT
  Age: 73 Year
  Sex: Male
  Weight: 60 kg

DRUGS (12)
  1. VENETOCLAX [Suspect]
     Active Substance: VENETOCLAX
     Indication: Chronic lymphocytic leukaemia
     Dosage: 20 MILLIGRAM
     Route: 048
     Dates: start: 20181010, end: 20181016
  2. VENETOCLAX [Suspect]
     Active Substance: VENETOCLAX
     Indication: Chronic lymphocytic leukaemia
     Dosage: 50 MILLIGRAM
     Route: 048
     Dates: start: 20181017, end: 20181023
  3. VALACYCLOVIR HYDROCHLORIDE [Concomitant]
     Active Substance: VALACYCLOVIR HYDROCHLORIDE
     Indication: Infection prophylaxis
     Dates: start: 20181010
  4. BACTRIM [Concomitant]
     Active Substance: SULFAMETHOXAZOLE\TRIMETHOPRIM
     Indication: Antibiotic prophylaxis
     Dates: start: 20181010
  5. ESOMEPRAZOLE [Concomitant]
     Active Substance: ESOMEPRAZOLE
     Indication: Gastrooesophageal reflux prophylaxis
     Dates: start: 20181019
  6. LACOSAMIDE [Concomitant]
     Active Substance: LACOSAMIDE
     Indication: Seizure prophylaxis
     Dates: start: 20181019
  7. LORMETAZEPAM [Concomitant]
     Active Substance: LORMETAZEPAM
     Indication: Depression
     Dates: start: 2017
  8. ESCITALOPRAM [Concomitant]
     Active Substance: ESCITALOPRAM OXALATE
     Indication: Depression
     Dates: start: 2017
  9. XANAX [Concomitant]
     Active Substance: ALPRAZOLAM
     Indication: Depression
     Dates: start: 201810
  10. CHOLECALCIFEROL [Concomitant]
     Active Substance: CHOLECALCIFEROL
     Indication: Pathological fracture prophylaxis
     Dates: start: 20181016
  11. UNSPECIFIED INGREDIENT [Concomitant]
     Active Substance: UNSPECIFIED INGREDIENT
     Indication: Dental disorder prophylaxis
     Dates: start: 20181016
  12. Orocal [Concomitant]
     Indication: Pathological fracture prophylaxis
     Dates: start: 20181019

REACTIONS (13)
  - Progressive multifocal leukoencephalopathy [Fatal]
  - Anal incontinence [Not Recovered/Not Resolved]
  - Hyperkalaemia [Recovered/Resolved]
  - Urinary incontinence [Not Recovered/Not Resolved]
  - Neurological decompensation [Not Recovered/Not Resolved]
  - Spinal pain [Not Recovered/Not Resolved]
  - Ecchymosis [Unknown]
  - Pain [Not Recovered/Not Resolved]
  - Pyrexia [Not Recovered/Not Resolved]
  - Constipation [Recovered/Resolved]
  - Hypocalcaemia [Recovered/Resolved]
  - Hyperuricaemia [Recovered/Resolved]
  - Diarrhoea [Unknown]

NARRATIVE: CASE EVENT DATE: 20181001
